FAERS Safety Report 9587318 (Version 2)
Quarter: 2014Q1

REPORT INFORMATION
  Report Type: Spontaneous
  Country: US (occurrence: US)
  Receive Date: 20131003
  Receipt Date: 20140117
  Transmission Date: 20141002
  Serious: Yes (Hospitalization)
  Sender: FDA-Public Use
  Company Number: US-PFIZER INC-2013281365

PATIENT
  Age: 52 Year
  Sex: Female
  Weight: 113.8 kg

DRUGS (8)
  1. NEURONTIN [Suspect]
     Indication: NEURALGIA
     Dosage: 300 MG, 3X/DAY
     Route: 048
  2. NEXIUM [Concomitant]
     Dosage: UNK
  3. LANTUS [Concomitant]
     Dosage: UNK
  4. VENTOLIN [Concomitant]
     Indication: ASTHMA
     Dosage: UNK
  5. METOPROLOL [Concomitant]
     Indication: BLOOD PRESSURE ABNORMAL
     Dosage: UNK
  6. LISINOPRIL [Concomitant]
     Indication: BLOOD PRESSURE ABNORMAL
     Dosage: UNK
  7. METFORMIN [Concomitant]
     Indication: DIABETES MELLITUS
     Dosage: UNK
  8. LIDODERM [Concomitant]
     Indication: BACK DISORDER
     Dosage: UNK

REACTIONS (4)
  - Off label use [Unknown]
  - Diabetes mellitus [Unknown]
  - Tooth disorder [Unknown]
  - Pain [Unknown]
